FAERS Safety Report 9003842 (Version 1)
Quarter: 2013Q1

REPORT INFORMATION
  Report Type: Spontaneous
  Country: US (occurrence: US)
  Receive Date: 20130108
  Receipt Date: 20130108
  Transmission Date: 20140127
  Serious: No
  Sender: FDA-Public Use
  Company Number: US-GLAXOSMITHKLINE-A0992392A

PATIENT
  Age: 68 Year
  Sex: Female

DRUGS (11)
  1. LOVAZA [Suspect]
     Indication: BLOOD TRIGLYCERIDES INCREASED
     Dosage: 1CAP PER DAY
     Route: 048
     Dates: start: 20120902
  2. ORENCIA [Concomitant]
  3. HYDROXYZINE [Concomitant]
  4. BENICAR [Concomitant]
  5. AMILORIDE [Concomitant]
  6. TOPROL [Concomitant]
  7. PREMARIN [Concomitant]
  8. PREDNISONE [Concomitant]
  9. RANITIDINE [Concomitant]
  10. PRILOSEC [Concomitant]
  11. NITRATE [Concomitant]

REACTIONS (2)
  - Abnormal faeces [Unknown]
  - Flatulence [Unknown]
